FAERS Safety Report 20697843 (Version 1)
Quarter: 2022Q2

REPORT INFORMATION
  Report Type: Report from Study
  Country: US (occurrence: US)
  Receive Date: 20220411
  Receipt Date: 20220411
  Transmission Date: 20220721
  Serious: Yes (Other)
  Sender: FDA-Public Use
  Company Number: US-BRISTOL-MYERS SQUIBB COMPANY-2022-016348

PATIENT
  Age: 60 Year
  Sex: Female
  Weight: 72.574 kg

DRUGS (1)
  1. POMALYST [Suspect]
     Active Substance: POMALIDOMIDE
     Indication: Plasma cell myeloma
     Dosage: 1 CAP, 21 OUT OF 28 DAYS
     Route: 065
     Dates: start: 201912

REACTIONS (2)
  - Neuropathy peripheral [Unknown]
  - Road traffic accident [Unknown]
